FAERS Safety Report 8344707-2 (Version None)
Quarter: 2012Q2

REPORT INFORMATION
  Report Type: 
  Country: None (occurrence: None)
  Receive Date: 20120508
  Receipt Date: 20120508
  Transmission Date: 20120825
  Serious: Yes (Death)
  Sender: FDA-Public Use
  Company Number: CN-ROCHE-1066519

PATIENT
  Sex: Male

DRUGS (3)
  1. PREDNISONE TAB [Concomitant]
     Indication: LIVER TRANSPLANT
  2. TACROLIMUS [Concomitant]
     Indication: LIVER TRANSPLANT
  3. MYCOPHENOLATE MOFETIL (CELLCEPT) [Suspect]
     Indication: LIVER TRANSPLANT
     Route: 048
     Dates: start: 20091212

REACTIONS (1)
  - HEPATIC NEOPLASM MALIGNANT [None]
